FAERS Safety Report 24080521 (Version 1)
Quarter: 2024Q3

REPORT INFORMATION
  Report Type: Spontaneous
  Country: GB (occurrence: GB)
  Receive Date: 20240711
  Receipt Date: 20240711
  Transmission Date: 20241016
  Serious: Yes (Hospitalization, Other)
  Sender: TEVA
  Company Number: None

PATIENT
  Age: 67 Year
  Sex: Female

DRUGS (15)
  1. SPIRONOLACTONE [Suspect]
     Active Substance: SPIRONOLACTONE
     Dosage: 12.5MG DAILY
     Route: 065
  2. FUROSEMIDE [Concomitant]
     Active Substance: FUROSEMIDE
  3. TRIMETHOPRIM [Concomitant]
     Active Substance: TRIMETHOPRIM
  4. CLONAZEPAM [Concomitant]
     Active Substance: CLONAZEPAM
  5. PROCYCLIDINE [Concomitant]
     Active Substance: PROCYCLIDINE
  6. TRELEGY ELLIPTA [Concomitant]
     Active Substance: FLUTICASONE FUROATE\UMECLIDINIUM BROMIDE\VILANTEROL TRIFENATATE
  7. RISPERIDONE [Concomitant]
     Active Substance: RISPERIDONE
  8. RAMIPRIL [Concomitant]
     Active Substance: RAMIPRIL
  9. COCODAMOL [Concomitant]
     Active Substance: ACETAMINOPHEN\CODEINE PHOSPHATE
  10. DOCUSATE [Concomitant]
     Active Substance: DOCUSATE
  11. VENLAFAXINE [Concomitant]
     Active Substance: VENLAFAXINE HYDROCHLORIDE
  12. ALBUTEROL [Concomitant]
     Active Substance: ALBUTEROL
  13. SENNA [Concomitant]
     Active Substance: SENNA LEAF\SENNOSIDES\SENNOSIDES A AND B
  14. CHLORPROMAZINE [Concomitant]
     Active Substance: CHLORPROMAZINE
  15. BISOPROLOL [Concomitant]
     Active Substance: BISOPROLOL\BISOPROLOL FUMARATE

REACTIONS (1)
  - Acute kidney injury [Recovering/Resolving]

NARRATIVE: CASE EVENT DATE: 20240630
